FAERS Safety Report 24805339 (Version 1)
Quarter: 2025Q1

REPORT INFORMATION
  Report Type: Spontaneous
  Country: DE (occurrence: DE)
  Receive Date: 20250103
  Receipt Date: 20250103
  Transmission Date: 20250408
  Serious: Yes (Other)
  Sender: GE HEALTHCARE
  Company Number: DE-DCGMA-24204506

PATIENT
  Age: 40 Year
  Sex: Female
  Weight: 65 kg

DRUGS (1)
  1. CLARISCAN [Suspect]
     Active Substance: GADOTERATE MEGLUMINE
     Indication: Magnetic resonance imaging
     Route: 042
     Dates: start: 20241215, end: 20241215

REACTIONS (5)
  - Haematuria [Unknown]
  - Dysuria [Unknown]
  - Cough [Unknown]
  - Headache [Unknown]
  - Abdominal pain lower [Unknown]

NARRATIVE: CASE EVENT DATE: 20241215
